FAERS Safety Report 9746805 (Version 1)
Quarter: 2013Q4

REPORT INFORMATION
  Report Type: Report from Study
  Country: BR (occurrence: BR)
  Receive Date: 20131211
  Receipt Date: 20131211
  Transmission Date: 20140711
  Serious: Yes (Other)
  Sender: FDA-Public Use
  Company Number: PHHY2013BR144976

PATIENT
  Age: 77 Year
  Sex: Female
  Weight: 55 kg

DRUGS (8)
  1. ACLASTA [Suspect]
     Indication: OSTEOPOROSIS
     Dosage: 5 MG, UNK
     Route: 042
     Dates: start: 2012
  2. CALCIUM D3 SANDOZ [Suspect]
     Indication: OSTEOPOROSIS
     Dosage: 1 TABLET, DAILY
     Route: 048
  3. METFORMINA [Concomitant]
     Indication: DIABETES MELLITUS
     Dosage: 1 TABLET (850MG) DAILY
     Route: 048
  4. AZUKON [Concomitant]
     Indication: DIABETES MELLITUS
     Dosage: 2 TABLETS (30MG) DAILY
     Route: 048
  5. AMYTRIL [Concomitant]
     Indication: PAIN
     Dosage: 1 TABLET DAILY
     Route: 048
  6. AMYTRIL [Concomitant]
     Indication: OSTEOPOROSIS
  7. PURAN T4 [Concomitant]
     Indication: THYROID DISORDER
     Dosage: 1 TABLET (800 UG), DAILY
     Route: 048
  8. OMEPRAZOLE [Concomitant]
     Indication: GASTROINTESTINAL DISORDER
     Dosage: 1 TABLET (20 MG), DAILY
     Route: 048

REACTIONS (2)
  - Fall [Recovered/Resolved]
  - Femur fracture [Recovered/Resolved]
